FAERS Safety Report 7061512-8 (Version None)
Quarter: 2010Q4

REPORT INFORMATION
  Report Type: 
  Country: None (occurrence: None)
  Receive Date: 20101026
  Receipt Date: 20101021
  Transmission Date: 20110411
  Serious: Yes (Other)
  Sender: FDA-Public Use
  Company Number: US-PFIZER INC-2010132977

PATIENT
  Sex: Female

DRUGS (6)
  1. AMLODIPINE BESYLATE [Suspect]
     Dosage: UNK
  2. GABAPENTIN [Suspect]
     Dosage: UNK
  3. LISINOPRIL [Suspect]
     Dosage: UNK
  4. SIMVASTATIN [Suspect]
     Dosage: UNK
  5. CALCIUM [Suspect]
     Dosage: UNK
  6. ACETYLSALICYLIC ACID [Suspect]
     Dosage: UNK

REACTIONS (2)
  - BLOOD DISORDER [None]
  - INTERSTITIAL GRANULOMATOUS DERMATITIS [None]
